FAERS Safety Report 11328838 (Version 2)
Quarter: 2015Q3

REPORT INFORMATION
  Report Type: Spontaneous
  Country: FR (occurrence: FR)
  Receive Date: 20150731
  Receipt Date: 20150811
  Transmission Date: 20151125
  Serious: Yes (Other)
  Sender: FDA-Public Use
  Company Number: FR-AMGEN-FRASP2015075822

PATIENT
  Age: 83 Year
  Sex: Female

DRUGS (1)
  1. XGEVA [Suspect]
     Active Substance: DENOSUMAB
     Indication: PRODUCT USED FOR UNKNOWN INDICATION
     Dosage: UNK, UNK
     Route: 065
     Dates: start: 2012

REACTIONS (5)
  - Osteitis [Recovering/Resolving]
  - Tooth disorder [Unknown]
  - Osteonecrosis of jaw [Unknown]
  - Adverse drug reaction [Unknown]
  - Tooth avulsion [Recovering/Resolving]
